FAERS Safety Report 16550765 (Version 2)
Quarter: 2025Q4

REPORT INFORMATION
  Report Type: Spontaneous
  Country: EU (occurrence: EU)
  Receive Date: 20190710
  Receipt Date: 20251008
  Transmission Date: 20260117
  Serious: Yes (Hospitalization)
  Sender: AUROBINDO
  Company Number: EU-AUROBINDO-AUR-APL-2019-038961

PATIENT
  Age: 34 Year
  Sex: Male

DRUGS (4)
  1. PREGABALIN [Interacting]
     Active Substance: PREGABALIN
     Indication: Anxiety
     Dosage: 300 MILLIGRAM, ONCE A DAY
     Route: 065
  2. PREGABALIN [Interacting]
     Active Substance: PREGABALIN
     Dosage: 300 MILLIGRAM, TWO TIMES A DAY
     Route: 065
  3. PREGABALIN [Interacting]
     Active Substance: PREGABALIN
     Dosage: 150 MILLIGRAM, TWO TIMES A DAY
     Route: 065
  4. CLOZAPINE [Interacting]
     Active Substance: CLOZAPINE
     Indication: Schizophrenia
     Dosage: 200 MILLIGRAM, 6 HOUR
     Route: 065

REACTIONS (1)
  - Drug interaction [Recovered/Resolved]
